FAERS Safety Report 6165277-3 (Version None)
Quarter: 2009Q2

REPORT INFORMATION
  Report Type: 
  Country: None (occurrence: None)
  Receive Date: 20090423
  Receipt Date: 20090417
  Transmission Date: 20091009
  Serious: Yes (Hospitalization, Other)
  Sender: FDA-Public Use
  Company Number: B0561034A

PATIENT
  Sex: Male

DRUGS (1)
  1. RELENZA [Suspect]
     Indication: INFLUENZA
     Dosage: 5MG TWICE PER DAY
     Route: 055
     Dates: start: 20090207, end: 20090210

REACTIONS (5)
  - ABNORMAL BEHAVIOUR [None]
  - ALTERED STATE OF CONSCIOUSNESS [None]
  - DELIRIUM [None]
  - ENCEPHALITIS [None]
  - SOMNOLENCE [None]
